FAERS Safety Report 13467151 (Version 2)
Quarter: 2018Q1

REPORT INFORMATION
  Report Type: Spontaneous
  Country: US (occurrence: US)
  Receive Date: 20170421
  Receipt Date: 20180328
  Transmission Date: 20180508
  Serious: Yes (Other)
  Sender: FDA-Public Use
  Company Number: US-BAYER-2017-076739

PATIENT
  Age: 31 Year
  Sex: Female
  Weight: 91 kg

DRUGS (1)
  1. SKYLA [Suspect]
     Active Substance: LEVONORGESTREL
     Indication: CONTRACEPTION
     Dosage: 14 MCG/24HR, CONT
     Route: 015
     Dates: start: 20151231, end: 20170416

REACTIONS (3)
  - Ruptured ectopic pregnancy [None]
  - Ectopic pregnancy with contraceptive device [Unknown]
  - Drug ineffective [None]
